FAERS Safety Report 17884507 (Version 2)
Quarter: 2020Q2

REPORT INFORMATION
  Report Type: Spontaneous
  Country: US (occurrence: US)
  Receive Date: 20200611
  Receipt Date: 20200612
  Transmission Date: 20200714
  Serious: No
  Sender: FDA-Public Use
  Company Number: US-PFIZER INC-2020227615

PATIENT
  Age: 75 Year
  Sex: Female

DRUGS (1)
  1. TOVIAZ [Suspect]
     Active Substance: FESOTERODINE FUMARATE
     Indication: AUTOMATIC BLADDER
     Dosage: 4 MG, 1X/DAY[ONCE DAILY AT NIGHT]
     Route: 048

REACTIONS (1)
  - Therapeutic product effect decreased [Unknown]
